FAERS Safety Report 17357076 (Version 1)
Quarter: 2020Q1

REPORT INFORMATION
  Report Type: Spontaneous
  Country: US (occurrence: US)
  Receive Date: 20200131
  Receipt Date: 20200131
  Transmission Date: 20200409
  Serious: Yes (Death, Hospitalization)
  Sender: FDA-Public Use
  Company Number: US-BAUSCH-BL-2020-001932

PATIENT
  Age: 34 Year
  Sex: Female

DRUGS (1)
  1. MAGNESIUM [Suspect]
     Active Substance: MAGNESIUM
     Indication: BRONCHOSPASM
     Route: 065

REACTIONS (3)
  - Respiratory failure [Not Recovered/Not Resolved]
  - Brain herniation [Fatal]
  - Therapy non-responder [Unknown]
